FAERS Safety Report 13235443 (Version 1)
Quarter: 2017Q1

REPORT INFORMATION
  Report Type: Spontaneous
  Country: FR (occurrence: FR)
  Receive Date: 20170215
  Receipt Date: 20170215
  Transmission Date: 20170428
  Serious: Yes (Hospitalization)
  Sender: FDA-Public Use
  Company Number: FR-PFIZER INC-2017060049

PATIENT
  Age: 83 Year
  Sex: Male

DRUGS (6)
  1. MODOPAR [Suspect]
     Active Substance: BENSERAZIDE HYDROCHLORIDE\LEVODOPA
     Dosage: 1 DF, 3X/DAY
     Route: 048
     Dates: start: 201612
  2. CALCIDIA [Suspect]
     Active Substance: CALCIUM POLYCARBOPHIL
     Dosage: 1.54 G, 1X/DAY
     Route: 048
  3. AMLOR [Suspect]
     Active Substance: AMLODIPINE BESYLATE
     Indication: HYPERTENSION
     Dosage: 5 MG, 1X/DAY
     Route: 048
     Dates: end: 20170103
  4. MODOPAR [Suspect]
     Active Substance: BENSERAZIDE HYDROCHLORIDE\LEVODOPA
     Indication: PARKINSON^S DISEASE
     Dosage: 1 DF, 3X/DAY
     Route: 048
  5. OFLOXACIN. [Suspect]
     Active Substance: OFLOXACIN
     Indication: OSTEITIS
     Dosage: 200 MG, 1X/DAY
     Route: 048
     Dates: start: 20161221, end: 20161225
  6. RIFAMPICIN [Suspect]
     Active Substance: RIFAMPIN
     Indication: OSTEITIS
     Dosage: 300 MG, 1X/DAY
     Route: 048
     Dates: start: 20161221, end: 20161225

REACTIONS (1)
  - Acute kidney injury [Not Recovered/Not Resolved]

NARRATIVE: CASE EVENT DATE: 20161226
